FAERS Safety Report 23421056 (Version 1)
Quarter: 2024Q1

REPORT INFORMATION
  Report Type: Spontaneous
  Country: IT (occurrence: IT)
  Receive Date: 20240119
  Receipt Date: 20240119
  Transmission Date: 20240410
  Serious: Yes (Hospitalization)
  Sender: FDA-Public Use
  Company Number: None

PATIENT
  Age: 57 Year
  Sex: Female

DRUGS (1)
  1. EZETIMIBE [Suspect]
     Active Substance: EZETIMIBE
     Indication: Intentional self-injury
     Dosage: 10 MG
     Dates: start: 20231028, end: 20231028

REACTIONS (6)
  - Toxicity to various agents [Recovered/Resolved]
  - Cognitive disorder [Recovered/Resolved]
  - Asthenia [Recovered/Resolved]
  - Sopor [Recovered/Resolved]
  - Drug abuse [Recovered/Resolved]
  - Bradykinesia [Recovered/Resolved]

NARRATIVE: CASE EVENT DATE: 20231028
